FAERS Safety Report 18414526 (Version 1)
Quarter: 2020Q4

REPORT INFORMATION
  Report Type: Spontaneous
  Country: US (occurrence: US)
  Receive Date: 20201021
  Receipt Date: 20201021
  Transmission Date: 20210114
  Serious: No
  Sender: FDA-Public Use
  Company Number: None

PATIENT
  Age: 58 Year
  Sex: Female
  Weight: 57.6 kg

DRUGS (12)
  1. PROBIOTICS [Concomitant]
     Active Substance: PROBIOTICS NOS
  2. ARMOUR THYROID [Concomitant]
     Active Substance: THYROID, PORCINE
  3. ESTRADIOL. [Concomitant]
     Active Substance: ESTRADIOL
  4. FISH OIL [Concomitant]
     Active Substance: FISH OIL
  5. MULTIVITAMIN [Concomitant]
     Active Substance: VITAMINS
  6. TESTOSTERONE. [Concomitant]
     Active Substance: TESTOSTERONE
  7. 81 MG ASPIRIN [Concomitant]
     Active Substance: ASPIRIN
  8. PROBIOTICS [Concomitant]
     Active Substance: PROBIOTICS NOS
  9. XIIDRA [Suspect]
     Active Substance: LIFITEGRAST
     Indication: DRY EYE
     Dates: start: 20200803, end: 20201019
  10. PROGESTERONE. [Concomitant]
     Active Substance: PROGESTERONE
  11. VITAMIN D3 [Concomitant]
     Active Substance: CHOLECALCIFEROL
  12. VITAMIN D3 [Concomitant]
     Active Substance: CHOLECALCIFEROL

REACTIONS (4)
  - Dry mouth [None]
  - Vision blurred [None]
  - Taste disorder [None]
  - Therapy cessation [None]

NARRATIVE: CASE EVENT DATE: 20201019
